FAERS Safety Report 5068813-3 (Version None)
Quarter: 2006Q3

REPORT INFORMATION
  Report Type: 
  Country: None (occurrence: None)
  Receive Date: 20060802
  Receipt Date: 20060412
  Transmission Date: 20061208
  Serious: No
  Sender: FDA-Public Use
  Company Number: US-BRISTOL-MYERS SQUIBB COMPANY-13344247

PATIENT
  Age: 76 Year
  Sex: Female
  Weight: 70 kg

DRUGS (6)
  1. COUMADIN [Suspect]
     Indication: ATRIAL FIBRILLATION
     Dosage: ON 11-APR-2006, SHE TOOK TWO, 2.5 MG TABS
     Dates: start: 20060228
  2. SYNTHROID [Concomitant]
  3. TOPROL-XL [Concomitant]
  4. FISH OIL [Concomitant]
  5. MOVE FREE [Concomitant]
  6. CALCIUM GLUCONATE [Concomitant]

REACTIONS (2)
  - PARAESTHESIA [None]
  - RESTLESSNESS [None]
